FAERS Safety Report 4342104-8 (Version None)
Quarter: 2004Q1

REPORT INFORMATION
  Report Type: 
  Country: None (occurrence: None)
  Receive Date: 20040329
  Receipt Date: 20040116
  Transmission Date: 20041129
  Serious: No
  Sender: FDA-Public Use
  Company Number: 04P-163-0247401-00

PATIENT
  Age: 48 Year
  Sex: Female
  Weight: 35.8342 kg

DRUGS (5)
  1. HUMIRA [Suspect]
     Indication: RHEUMATOID ARTHRITIS
     Dosage: SEE IMAGE
     Route: 058
     Dates: start: 20031026, end: 20031101
  2. HUMIRA [Suspect]
     Indication: RHEUMATOID ARTHRITIS
     Dosage: SEE IMAGE
     Route: 058
     Dates: start: 20031101
  3. ARTHROTEC [Concomitant]
  4. ACETAMINOPHEN W/ CODEINE [Concomitant]
  5. FOLIC ACID [Concomitant]

REACTIONS (5)
  - APHONIA [None]
  - COUGH [None]
  - HALLUCINATION [None]
  - LUNG DISORDER [None]
  - PARANOIA [None]
